FAERS Safety Report 8619442-3 (Version None)
Quarter: 2012Q3

REPORT INFORMATION
  Report Type: 
  Country: None (occurrence: None)
  Receive Date: 20120824
  Receipt Date: 20120822
  Transmission Date: 20120928
  Serious: Yes (Life-Threatening, Disabling)
  Sender: FDA-Public Use
  Company Number: JP-ABBOTT-01P-087-0114485-00

PATIENT
  Sex: Male
  Weight: 59.5 kg

DRUGS (29)
  1. NORVIR [Suspect]
     Route: 048
     Dates: start: 20080920
  2. ABACAVIR SULFATE [Suspect]
     Indication: HIV INFECTION
     Route: 048
     Dates: start: 20000724, end: 20000725
  3. TRUVADA [Concomitant]
     Indication: HIV INFECTION
     Route: 048
     Dates: start: 20080920
  4. AMLODIPINE BESYLATE [Concomitant]
     Indication: HYPERTENSION
     Dates: start: 20081031, end: 20090105
  5. STAVUDINE [Suspect]
     Indication: HIV INFECTION
     Dosage: DAILY
     Route: 048
     Dates: start: 19970825, end: 20011020
  6. DIDANOSINE [Suspect]
     Route: 048
     Dates: start: 20010721, end: 20040514
  7. SAQUINAVIR [Suspect]
     Indication: HIV INFECTION
     Route: 048
     Dates: start: 19990619, end: 20000318
  8. LEXIVA [Concomitant]
     Indication: HIV INFECTION
     Route: 048
     Dates: start: 20080920
  9. NORVIR [Suspect]
     Route: 048
     Dates: start: 20040425, end: 20080919
  10. EFAVIRENZ [Suspect]
     Route: 048
     Dates: start: 20000925, end: 20001002
  11. DIDANOSINE [Suspect]
     Indication: HIV INFECTION
     Route: 048
     Dates: start: 19941119, end: 20010721
  12. COAGULATION FACTOR VIII [Concomitant]
     Route: 048
     Dates: start: 20010401
  13. OLMESARTAN MEDOXOMIL [Concomitant]
     Indication: HYPERTENSION
     Dates: start: 20081031
  14. NORVIR [Suspect]
     Indication: HIV INFECTION
     Route: 048
     Dates: start: 19990619, end: 20001224
  15. ABACAVIR SULFATE [Suspect]
     Route: 048
     Dates: start: 20011020, end: 20011027
  16. EFAVIRENZ [Suspect]
     Indication: HIV INFECTION
     Route: 048
     Dates: start: 20000724, end: 20000725
  17. TENOFOVIR DISOPROXIL FUMARATE [Concomitant]
     Indication: HIV INFECTION
     Route: 048
     Dates: start: 20040425, end: 20080919
  18. ISENTRESS [Concomitant]
     Indication: HIV INFECTION
     Route: 048
     Dates: start: 20080920
  19. CROSS EIGHT M [Concomitant]
     Indication: COAGULATION FACTOR VIII LEVEL
     Dates: start: 19970825
  20. LAMIVUDINE [Suspect]
     Indication: HIV INFECTION
     Route: 048
     Dates: start: 20040515, end: 20080919
  21. SAQUINAVIR [Suspect]
     Dates: end: 20010331
  22. RIBAVIRIN [Concomitant]
     Indication: HEPATITIS C
     Route: 048
     Dates: start: 20020717, end: 20030712
  23. SAQUINAVIR [Suspect]
     Route: 048
     Dates: start: 20000524, end: 20001224
  24. COAGULATION FACTOR VIII [Concomitant]
     Indication: HAEMORRHAGE
     Dosage: 9-10 KU/MONTH
     Dates: start: 19991101
  25. KALETRA [Suspect]
     Indication: HIV INFECTION
     Route: 048
     Dates: end: 20040424
  26. INDINAVIR [Suspect]
     Indication: HIV INFECTION
     Route: 048
     Dates: start: 20000308, end: 20000524
  27. PEGINTERFERON ALFA-2B [Suspect]
     Indication: HEPATITIS C
     Dates: start: 20020817, end: 20030712
  28. RIBAVIRIN [Concomitant]
  29. ATAZANAVIR [Concomitant]
     Indication: HIV INFECTION
     Route: 048
     Dates: start: 20040425, end: 20080919

REACTIONS (10)
  - FIBRIN DEGRADATION PRODUCTS INCREASED [None]
  - DIZZINESS [None]
  - TREMOR [None]
  - INFLUENZA LIKE ILLNESS [None]
  - NAUSEA [None]
  - HEPATIC FUNCTION ABNORMAL [None]
  - VISUAL IMPAIRMENT [None]
  - PULMONARY HYPERTENSION [None]
  - PALPITATIONS [None]
  - NERVOUS SYSTEM DISORDER [None]
